FAERS Safety Report 6519094-2 (Version None)
Quarter: 2009Q4

REPORT INFORMATION
  Report Type: 
  Country: None (occurrence: None)
  Receive Date: 20091228
  Receipt Date: 20091221
  Transmission Date: 20100525
  Serious: Yes (Hospitalization)
  Sender: FDA-Public Use
  Company Number: JP-BAYER-200914657BYL

PATIENT
  Age: 57 Year
  Sex: Female

DRUGS (4)
  1. ADALAT CC [Suspect]
     Indication: HYPERTENSION
     Dosage: UNIT DOSE: 20 MG
     Route: 048
     Dates: start: 20091109, end: 20091118
  2. FUNGUARD [Suspect]
     Indication: INFECTION
     Dosage: UNIT DOSE: 75 MG
     Route: 041
     Dates: start: 20091110, end: 20091112
  3. VANCOMYCIN HCL [Suspect]
     Indication: INFECTION
     Dosage: UNIT DOSE: 0.5 G
     Route: 041
     Dates: start: 20091109, end: 20091111
  4. ESPO [Concomitant]
     Indication: NEPHROGENIC ANAEMIA
     Route: 042
     Dates: start: 20091111

REACTIONS (1)
  - TOXIC SKIN ERUPTION [None]
